FAERS Safety Report 9053920 (Version 1)
Quarter: 2013Q1

REPORT INFORMATION
  Report Type: Spontaneous
  Country: US (occurrence: None)
  Receive Date: 20130201
  Receipt Date: 20130201
  Transmission Date: 20140127
  Serious: Yes (Other)
  Sender: FDA-Public Use
  Company Number: None

PATIENT
  Age: 51 Year
  Sex: Male
  Weight: 92.99 kg

DRUGS (1)
  1. GENTAMICIN [Suspect]
     Indication: STREPTOCOCCAL INFECTION
     Route: 042
     Dates: start: 20121213, end: 20121214

REACTIONS (1)
  - Muscle spasms [None]
